FAERS Safety Report 5295375-8 (Version None)
Quarter: 2007Q2

REPORT INFORMATION
  Report Type: 
  Country: None (occurrence: None)
  Receive Date: 20070412
  Receipt Date: 20070403
  Transmission Date: 20071010
  Serious: Yes (Hospitalization)
  Sender: FDA-Public Use
  Company Number: JP-PFIZER INC-2007019578

PATIENT
  Sex: Male
  Weight: 55 kg

DRUGS (3)
  1. VFEND [Suspect]
     Indication: PNEUMONIA FUNGAL
     Route: 048
     Dates: start: 20070309, end: 20070311
  2. NEORAL [Suspect]
     Indication: APLASTIC ANAEMIA
     Route: 048
     Dates: start: 20010322, end: 20070305
  3. TAKEPRON [Concomitant]

REACTIONS (2)
  - RENAL FAILURE ACUTE [None]
  - RESPIRATORY FAILURE [None]
